FAERS Safety Report 10526288 (Version 1)
Quarter: 2014Q4

REPORT INFORMATION
  Report Type: Spontaneous
  Country: JP (occurrence: JP)
  Receive Date: 20141018
  Receipt Date: 20141018
  Transmission Date: 20150528
  Serious: Yes (Other)
  Sender: FDA-Public Use
  Company Number: JP-009507513-1410JPN007811

PATIENT
  Age: 29 Year
  Sex: Male

DRUGS (1)
  1. REFLEX [Suspect]
     Active Substance: MIRTAZAPINE
     Dosage: TOTAL DAILY DOSE 15MG
     Route: 048
     Dates: start: 201309, end: 201309

REACTIONS (2)
  - Drug-induced liver injury [Unknown]
  - Drug eruption [Unknown]
